FAERS Safety Report 16384429 (Version 1)
Quarter: 2019Q3

REPORT INFORMATION
  Report Type: Spontaneous
  Country: US (occurrence: US)
  Receive Date: 20190531
  Receipt Date: 20190531
  Transmission Date: 20191004
  Serious: Yes (Other)
  Sender: FDA-Public Use
  Company Number: None

PATIENT
  Age: 60 Year
  Sex: Female
  Weight: 50.85 kg

DRUGS (18)
  1. BOOST HIGH PROTEIN [Concomitant]
  2. OXYCODONE AND ACETAMINOPHEN [Concomitant]
     Active Substance: ACETAMINOPHEN\OXYCODONE HYDROCHLORIDE
  3. IBUPROFEN. [Concomitant]
     Active Substance: IBUPROFEN
  4. NYSTATIN. [Concomitant]
     Active Substance: NYSTATIN
  5. CLONAZEPAM. [Concomitant]
     Active Substance: CLONAZEPAM
  6. DIPHENHYDRAMINE HCL [Concomitant]
     Active Substance: DIPHENHYDRAMINE HYDROCHLORIDE
  7. VITAMIN E [Concomitant]
     Active Substance: .ALPHA.-TOCOPHEROL
  8. CETIRIZINE HCL [Concomitant]
     Active Substance: CETIRIZINE HYDROCHLORIDE
  9. LORATADINE. [Concomitant]
     Active Substance: LORATADINE
  10. PEG 3350 [Concomitant]
     Active Substance: POLYETHYLENE GLYCOL 3350
  11. KISQALI FEMARA CO-PACK [Suspect]
     Active Substance: LETROZOLE\RIBOCICLIB
     Indication: BREAST CANCER
     Route: 048
     Dates: start: 20190304
  12. KISQALI FEMARA CO-PACK [Suspect]
     Active Substance: LETROZOLE\RIBOCICLIB
     Indication: BONE CANCER METASTATIC
     Route: 048
     Dates: start: 20190304
  13. VITAMIN C [Concomitant]
     Active Substance: ASCORBIC ACID
  14. TRAMADOL HCL [Concomitant]
     Active Substance: TRAMADOL HYDROCHLORIDE
  15. DEXAMETHASONE. [Concomitant]
     Active Substance: DEXAMETHASONE
  16. LIDOCAINE-PRIOLOCAINE [Concomitant]
  17. OMEPRAZOLE. [Concomitant]
     Active Substance: OMEPRAZOLE
  18. KLOR-CON M20 [Concomitant]
     Active Substance: POTASSIUM CHLORIDE

REACTIONS (2)
  - Neutropenia [None]
  - Fatigue [None]
